FAERS Safety Report 6156824-6 (Version None)
Quarter: 2009Q2

REPORT INFORMATION
  Report Type: 
  Country: None (occurrence: None)
  Receive Date: 20090413
  Receipt Date: 20090413
  Transmission Date: 20091009
  Serious: Yes (Hospitalization)
  Sender: FDA-Public Use
  Company Number: None

PATIENT
  Age: 79 Year
  Sex: Female
  Weight: 79 kg

DRUGS (1)
  1. EZETIMIBE [Suspect]
     Indication: HYPERCHOLESTEROLAEMIA
     Dosage: 10MG QD PO
     Route: 048
     Dates: start: 20070101, end: 20090101

REACTIONS (2)
  - CHOLELITHIASIS [None]
  - PANCREATITIS ACUTE [None]
